FAERS Safety Report 16967500 (Version 1)
Quarter: 2019Q4

REPORT INFORMATION
  Report Type: Spontaneous
  Country: US (occurrence: US)
  Receive Date: 20191028
  Receipt Date: 20191028
  Transmission Date: 20200122
  Serious: No
  Sender: FDA-Public Use
  Company Number: US-ABBVIE-19K-163-2943155-00

PATIENT
  Sex: Male

DRUGS (2)
  1. MAVYRET [Suspect]
     Active Substance: GLECAPREVIR\PIBRENTASVIR
     Indication: HEPATITIS C
     Dosage: THREE TABLETS ONCE A DAY WITH FOOD
     Route: 048
     Dates: start: 201909
  2. PHOSPHORUS [Suspect]
     Active Substance: PHOSPHORUS
     Indication: CHRONIC KIDNEY DISEASE
     Route: 065

REACTIONS (1)
  - Pruritus [Not Recovered/Not Resolved]

NARRATIVE: CASE EVENT DATE: 201909
